FAERS Safety Report 7974036-8 (Version None)
Quarter: 2011Q4

REPORT INFORMATION
  Report Type: 
  Country: None (occurrence: None)
  Receive Date: 20111213
  Receipt Date: 20111208
  Transmission Date: 20120403
  Serious: Yes (Hospitalization)
  Sender: FDA-Public Use
  Company Number: GB-GLAXOSMITHKLINE-B0765359A

PATIENT
  Sex: Male

DRUGS (8)
  1. OMEPRAZOLE [Concomitant]
  2. CYCLIZINE [Concomitant]
     Dosage: 50MG THREE TIMES PER DAY
  3. PAZOPANIB [Suspect]
     Indication: RENAL CELL CARCINOMA
     Dosage: 800MG PER DAY
     Route: 048
     Dates: start: 20110816
  4. ENOXAPARIN SODIUM [Concomitant]
     Dosage: 80MG PER DAY
     Route: 058
  5. FLUTICASONE PROPIONATE/SALMETEROL [Concomitant]
  6. LANSOPRAZOLE [Concomitant]
     Dosage: 30MG PER DAY
  7. NYSTATIN [Concomitant]
  8. RAMIPRIL [Concomitant]
     Dosage: 2.5MG TWICE PER DAY

REACTIONS (1)
  - DYSPNOEA [None]
